FAERS Safety Report 17753787 (Version 1)
Quarter: 2020Q2

REPORT INFORMATION
  Report Type: Spontaneous
  Country: CZ (occurrence: CZ)
  Receive Date: 20200506
  Receipt Date: 20200506
  Transmission Date: 20200714
  Serious: Yes (Hospitalization)
  Sender: FDA-Public Use
  Company Number: CZ-CELGENEUS-CZE-20180301057

PATIENT
  Age: 77 Year
  Sex: Female
  Weight: 76 kg

DRUGS (33)
  1. NORMAL SALINE [Concomitant]
     Active Substance: SODIUM CHLORIDE
     Indication: PROPHYLAXIS
     Route: 041
     Dates: start: 20180214, end: 20180218
  2. METFORMIN HYDROCHLORIDE. [Concomitant]
     Active Substance: METFORMIN HYDROCHLORIDE
     Indication: DIABETES MELLITUS
     Dosage: 1000 MILLIGRAM
     Route: 048
     Dates: start: 2012, end: 20180218
  3. ALPRAZOLAMUM [Concomitant]
     Indication: PROPHYLAXIS
     Dosage: .5 MILLIGRAM
     Route: 048
     Dates: start: 20180214, end: 20180214
  4. NATRIUM [Concomitant]
     Indication: PROPHYLAXIS
     Dosage: 1000 MILLILITER
     Route: 041
     Dates: start: 20180214, end: 20180215
  5. ALLOPURINOL. [Concomitant]
     Active Substance: ALLOPURINOL
     Indication: PROPHYLAXIS
     Dosage: 300 MILLIGRAM
     Route: 048
     Dates: start: 20180214, end: 20180217
  6. COLECALCIFEROLUM [Concomitant]
     Dosage: 600 MILLIGRAM
     Route: 048
     Dates: start: 20180220, end: 20180315
  7. FLUCONAZOLUM [Concomitant]
     Indication: INFECTION PROPHYLAXIS
     Dosage: 400 MILLIGRAM
     Route: 048
     Dates: start: 20180206, end: 20180213
  8. ALLOPURINOL. [Concomitant]
     Active Substance: ALLOPURINOL
     Indication: GOUT
     Dosage: 300 MILLIGRAM
     Route: 048
     Dates: start: 20180220, end: 20180223
  9. ALPRAZOLAMUM [Concomitant]
     Dosage: .5 MILLIGRAM
     Route: 048
     Dates: start: 20180216, end: 20180217
  10. NATRIUM [Concomitant]
     Dosage: 500 MILLILITER
     Route: 041
     Dates: start: 20180218, end: 20180218
  11. NOVOMIX [Concomitant]
     Active Substance: INSULIN ASPART
     Indication: DIABETES MELLITUS
     Dosage: 36 IU (INTERNATIONAL UNIT)
     Route: 058
     Dates: start: 2012, end: 20180218
  12. PREDNISONUM [Concomitant]
     Active Substance: PREDNISONE
     Dosage: 7.5 MILLIGRAM
     Route: 048
     Dates: start: 20180206, end: 20180212
  13. PREDNISONUM [Concomitant]
     Active Substance: PREDNISONE
     Dosage: 2.5 MILLIGRAM
     Route: 048
     Dates: start: 20180217, end: 20180222
  14. ALPRAZOLAMUM [Concomitant]
     Dosage: .5 MILLIGRAM
     Route: 048
     Dates: start: 20180219
  15. NATRIUM [Concomitant]
     Dosage: 500 MILLILITER
     Route: 041
     Dates: start: 20180219
  16. AZACITIDINE. [Suspect]
     Active Substance: AZACITIDINE
     Indication: ACUTE MYELOID LEUKAEMIA
     Dosage: 75 MILLIGRAM/SQ. METER
     Route: 058
     Dates: start: 20180215
  17. PLACEBO [Concomitant]
     Active Substance: UNSPECIFIED INGREDIENT
     Route: 048
     Dates: start: 20180216, end: 20180216
  18. COLECALCIFEROLUM [Concomitant]
     Indication: PROPHYLAXIS
     Dosage: 1 DROPS
     Route: 065
     Dates: start: 201712
  19. ATORVASTATINUM [Concomitant]
     Indication: PROPHYLAXIS
     Dosage: 20 MILLIGRAM
     Route: 048
     Dates: start: 2013, end: 20180217
  20. ATORVASTATINUM [Concomitant]
     Dosage: 20 MILLIGRAM
     Route: 048
     Dates: start: 20180220
  21. FLUCONAZOLUM [Concomitant]
     Dosage: 200 MILLIGRAM
     Route: 048
     Dates: start: 20180214
  22. PLACEBO [Concomitant]
     Active Substance: UNSPECIFIED INGREDIENT
     Indication: ACUTE MYELOID LEUKAEMIA
     Route: 048
     Dates: start: 20180215, end: 20180215
  23. ARDEAELYTOSOL EL [Concomitant]
     Indication: PROPHYLAXIS
     Route: 041
     Dates: start: 20180219, end: 20180219
  24. METFORMIN HYDROCHLORIDE. [Concomitant]
     Active Substance: METFORMIN HYDROCHLORIDE
     Dosage: 1000 MILLIGRAM
     Route: 048
     Dates: start: 20180221
  25. RAMIPRILUMI AMLODIPINUM [Concomitant]
     Dosage: 5 MILLIGRAM
     Route: 048
     Dates: start: 20180218, end: 20180218
  26. SULFAMETHOXAZOLUM/TRIMETHOPRIMUM [Concomitant]
     Indication: INFECTION PROPHYLAXIS
     Dosage: 480 MILLIGRAM
     Route: 048
     Dates: start: 20180131
  27. ONDANSETRONUM [Concomitant]
     Active Substance: ONDANSETRON
     Indication: PROPHYLAXIS OF NAUSEA AND VOMITING
     Dosage: 8 MILLIGRAM
     Route: 048
     Dates: start: 20180217, end: 20180217
  28. NATRIUM [Concomitant]
     Dosage: 500 MILLILITER
     Route: 041
     Dates: start: 20180216, end: 20180218
  29. PLACEBO [Concomitant]
     Active Substance: UNSPECIFIED INGREDIENT
     Route: 048
     Dates: start: 20180217
  30. PREDNISONUM [Concomitant]
     Active Substance: PREDNISONE
     Indication: PROPHYLAXIS
     Dosage: 20 MILLIGRAM
     Route: 048
     Dates: start: 201710, end: 20180206
  31. PREDNISONUM [Concomitant]
     Active Substance: PREDNISONE
     Dosage: 5 MILLIGRAM
     Route: 048
     Dates: start: 20180213, end: 20180216
  32. RAMIPRILUMI AMLODIPINUM [Concomitant]
     Indication: HYPERTENSION
     Dosage: 10 MILLIGRAM
     Route: 048
     Dates: start: 2013, end: 20180217
  33. RAMIPRILUMI AMLODIPINUM [Concomitant]
     Dosage: 5 MILLIGRAM
     Route: 048
     Dates: start: 20180220

REACTIONS (1)
  - Bronchitis bacterial [Recovered/Resolved]

NARRATIVE: CASE EVENT DATE: 20180217
